FAERS Safety Report 9311823 (Version 2)
Quarter: 2015Q2

REPORT INFORMATION
  Report Type: Report from Study
  Country: BR (occurrence: BR)
  Receive Date: 20130528
  Receipt Date: 20150527
  Transmission Date: 20150821
  Serious: Yes (Hospitalization, Other)
  Sender: FDA-Public Use
  Company Number: PHHY2013BR052844

PATIENT
  Age: 46 Year
  Sex: Male
  Weight: 74 kg

DRUGS (4)
  1. OMEPRAZOLE. [Concomitant]
     Active Substance: OMEPRAZOLE
     Indication: DYSPEPSIA
     Dosage: 20 MG, DAILY
     Route: 048
     Dates: start: 2006
  2. DIOVAN AMLO FIX [Suspect]
     Active Substance: AMLODIPINE\VALSARTAN
     Indication: HYPERTENSION
     Dosage: 1 DF (160/5 MG), DAILY
     Route: 065
     Dates: start: 2006
  3. DIOVAN AMLO FIX [Suspect]
     Active Substance: AMLODIPINE\VALSARTAN
     Dosage: 1 DF (160/5 MG), UNK (IN THE MORNING)
     Route: 065
  4. OMEPRAZOLE. [Concomitant]
     Active Substance: OMEPRAZOLE
     Indication: GASTRITIS

REACTIONS (12)
  - Hand fracture [Unknown]
  - Asthenia [Unknown]
  - Peripheral swelling [Unknown]
  - Pain in extremity [Unknown]
  - Immunodeficiency [Recovered/Resolved]
  - Dengue fever [Recovered/Resolved]
  - Accident [Unknown]
  - Fall [Unknown]
  - Anxiety [Recovering/Resolving]
  - Pharyngitis [Recovered/Resolved]
  - Vomiting [Unknown]
  - Bradyphrenia [Unknown]

NARRATIVE: CASE EVENT DATE: 2010
